FAERS Safety Report 21340045 (Version 1)
Quarter: 2022Q3

REPORT INFORMATION
  Report Type: Spontaneous
  Country: DE (occurrence: DE)
  Receive Date: 20220915
  Receipt Date: 20220915
  Transmission Date: 20221027
  Serious: Yes (Hospitalization, Disabling)
  Sender: FDA-Public Use
  Company Number: DE-EMA-DD-20220826-5861859-114435

PATIENT
  Age: 43 Year
  Sex: Female

DRUGS (23)
  1. PANTOPRAZOLE [Suspect]
     Active Substance: PANTOPRAZOLE
     Indication: Retinal artery occlusion
  2. ASPIRIN [Suspect]
     Active Substance: ASPIRIN
     Indication: Retinal artery occlusion
  3. TINZAPARIN SODIUM [Suspect]
     Active Substance: TINZAPARIN SODIUM
     Indication: Retinal artery occlusion
     Dosage: 4.500IE
  4. METHYLPREDNISOLONE [Suspect]
     Active Substance: METHYLPREDNISOLONE
     Indication: Retinal artery occlusion
  5. ATROPINE [Suspect]
     Active Substance: ATROPINE
     Indication: Retinal artery occlusion
     Dosage: QD (DOSE REDUCED)
  6. ATROPINE [Suspect]
     Active Substance: ATROPINE
     Dosage: BID
  7. OFLOXACIN [Suspect]
     Active Substance: OFLOXACIN
     Indication: Retinal artery occlusion
     Dosage: 3 MILLIGRAM PER GRAM, 0.25 D
  8. OFLOXACIN [Suspect]
     Active Substance: OFLOXACIN
     Dosage: 3 MILLIGRAM PER GRAM DOSE REDUCED, TID
  9. PREDNISOLONE [Suspect]
     Active Substance: PREDNISOLONE
     Indication: Retinal artery occlusion
     Dosage: 10 MG/ML, BID (DOSE REDUCED)
  10. PREDNISOLONE [Suspect]
     Active Substance: PREDNISOLONE
     Dosage: 10 MG/ML, TID
  11. PREDNISOLONE [Suspect]
     Active Substance: PREDNISOLONE
     Dosage: 10 MG/ML, QD
  12. PREDNISONE [Suspect]
     Active Substance: PREDNISONE
     Indication: Retinal artery occlusion
     Dosage: 90 MG
  13. PREDNISONE [Suspect]
     Active Substance: PREDNISONE
     Dosage: 5 MG, QD (FOR TWO WEEKS)
  14. PREDNISONE [Suspect]
     Active Substance: PREDNISONE
     Dosage: 50 MG, QD (REDUCED)
  15. PREDNISONE [Suspect]
     Active Substance: PREDNISONE
     Dosage: 60 MG
  16. PREDNISONE [Suspect]
     Active Substance: PREDNISONE
     Dosage: 10 MG (FURTHER REDUCTION OF 10 MG EVERY THREE DAYS, REMAINING ON 10 MG)
  17. HYALURONIC ACID [Suspect]
     Active Substance: HYALURONIC ACID
     Indication: Dermal filler injection
     Dosage: 0.7 ML, GLABELLAR INJECTION
  18. CLINDAMYCIN [Suspect]
     Active Substance: CLINDAMYCIN
     Indication: Retinal artery occlusion
     Dosage: 300 MG, 0.25 D
  19. DEXPANTHENOL [Suspect]
     Active Substance: DEXPANTHENOL
     Indication: Retinal artery occlusion
     Dosage: 0.25 D
  20. DEXPANTHENOL [Suspect]
     Active Substance: DEXPANTHENOL
     Dosage: DOSE REDUCED (6 TIMES DAILY)
  21. DEXPANTHENOL [Suspect]
     Active Substance: DEXPANTHENOL
     Dosage: 2 HOURS, DOSE INCREASED
  22. SEA WATER [Concomitant]
     Active Substance: SEA WATER
     Indication: Product used for unknown indication
     Dosage: UNK
  23. DEXAMETHASONE [Concomitant]
     Active Substance: DEXAMETHASONE
     Indication: Retinal artery occlusion
     Dosage: 1 MG/ML, QD

REACTIONS (9)
  - Madarosis [Not Recovered/Not Resolved]
  - Blindness [Not Recovered/Not Resolved]
  - Lagophthalmos [Not Recovered/Not Resolved]
  - Hypotonia [Not Recovered/Not Resolved]
  - Skin lesion [Not Recovered/Not Resolved]
  - Retinal degeneration [Not Recovered/Not Resolved]
  - Strabismus [Not Recovered/Not Resolved]
  - Anterior segment ischaemia [Not Recovered/Not Resolved]
  - Drug ineffective [Unknown]
